FAERS Safety Report 14609981 (Version 1)
Quarter: 2018Q1

REPORT INFORMATION
  Report Type: Report from Study
  Country: US (occurrence: US)
  Receive Date: 20180307
  Receipt Date: 20180307
  Transmission Date: 20180509
  Serious: Yes (Death, Hospitalization)
  Sender: FDA-Public Use
  Company Number: US-ACTELION-A-NJ2017-153156

PATIENT
  Age: 48 Year
  Sex: Female

DRUGS (14)
  1. ADEMPAS [Concomitant]
     Active Substance: RIOCIGUAT
  2. WARFARIN [Concomitant]
     Active Substance: WARFARIN
  3. OMEPRAZOLE. [Concomitant]
     Active Substance: OMEPRAZOLE
  4. AMIODARONE [Concomitant]
     Active Substance: AMIODARONE
  5. POTASSIUM [Concomitant]
     Active Substance: POTASSIUM
  6. METHADONE [Concomitant]
     Active Substance: METHADONE HYDROCHLORIDE
  7. FUROSEMIDE. [Concomitant]
     Active Substance: FUROSEMIDE
  8. TRACLEER [Suspect]
     Active Substance: BOSENTAN
     Indication: PULMONARY ARTERIAL HYPERTENSION
     Dosage: 62.5 MG, BID
     Route: 048
     Dates: start: 20170506
  9. ALBUTEROL. [Concomitant]
     Active Substance: ALBUTEROL
  10. DILTIAZEM CD [Concomitant]
     Active Substance: DILTIAZEM
  11. BUMETANIDE. [Concomitant]
     Active Substance: BUMETANIDE
  12. SERTRALINE [Concomitant]
     Active Substance: SERTRALINE HYDROCHLORIDE
  13. ZOLPIDEM [Concomitant]
     Active Substance: ZOLPIDEM\ZOLPIDEM TARTRATE
  14. METOLAZONE. [Concomitant]
     Active Substance: METOLAZONE

REACTIONS (10)
  - Dyspnoea [Not Recovered/Not Resolved]
  - Malaise [Unknown]
  - Headache [Recovered/Resolved]
  - Diarrhoea [Recovered/Resolved]
  - Pulmonary function test decreased [Unknown]
  - Death [Fatal]
  - Oxygen saturation decreased [Unknown]
  - Fluid overload [Recovered/Resolved]
  - Peripheral swelling [Not Recovered/Not Resolved]
  - Oedema [Recovered/Resolved]

NARRATIVE: CASE EVENT DATE: 20170515
